FAERS Safety Report 13597922 (Version 2)
Quarter: 2017Q3

REPORT INFORMATION
  Report Type: Spontaneous
  Country: FR (occurrence: FR)
  Receive Date: 20170531
  Receipt Date: 20170803
  Transmission Date: 20171127
  Serious: Yes (Hospitalization, Disabling, Other)
  Sender: FDA-Public Use
  Company Number: FR-CLINIGEN GROUP PLC/ CLINIGEN HEALTHCARE LTD-E2B_00005404

PATIENT
  Age: 55 Year
  Sex: Female

DRUGS (6)
  1. FOSCAVIR [Suspect]
     Active Substance: FOSCARNET SODIUM
     Indication: CYTOMEGALOVIRUS INFECTION
     Route: 042
     Dates: start: 20130127, end: 201302
  2. FOSCAVIR [Suspect]
     Active Substance: FOSCARNET SODIUM
     Route: 042
     Dates: start: 20130210, end: 20130222
  3. CORTANCYL [Concomitant]
     Active Substance: PREDNISONE
     Indication: PRODUCT USED FOR UNKNOWN INDICATION
  4. CELLECEPT [Concomitant]
     Indication: PRODUCT USED FOR UNKNOWN INDICATION
  5. PROGRAF [Concomitant]
     Active Substance: TACROLIMUS\TACROLIMUS ANHYDROUS
     Indication: PRODUCT USED FOR UNKNOWN INDICATION
  6. EUPRESSYL [Concomitant]
     Active Substance: URAPIDIL
     Indication: PRODUCT USED FOR UNKNOWN INDICATION

REACTIONS (8)
  - Off label use [Unknown]
  - Nephropathy toxic [Unknown]
  - Septic shock [Unknown]
  - Nephrolithiasis [Unknown]
  - Pneumonia [Unknown]
  - Pancreatitis acute [Recovered/Resolved]
  - Graft loss [Not Recovered/Not Resolved]
  - Renal tubular necrosis [Unknown]

NARRATIVE: CASE EVENT DATE: 201302
